FAERS Safety Report 12772139 (Version 1)
Quarter: 2016Q3

REPORT INFORMATION
  Report Type: Spontaneous
  Country: US (occurrence: US)
  Receive Date: 20160922
  Receipt Date: 20160922
  Transmission Date: 20161109
  Serious: No
  Sender: FDA-Public Use
  Company Number: US-BAYER-2016-182922

PATIENT
  Sex: Female
  Weight: 74.83 kg

DRUGS (1)
  1. ULTRAVIST [Suspect]
     Active Substance: IOPROMIDE
     Indication: ABDOMINAL PAIN LOWER
     Dosage: UNK, ONCE
     Route: 042

REACTIONS (2)
  - Nasal congestion [Recovered/Resolved]
  - Sneezing [Recovered/Resolved]
